FAERS Safety Report 13355995 (Version 1)
Quarter: 2017Q1

REPORT INFORMATION
  Report Type: Spontaneous
  Country: US (occurrence: US)
  Receive Date: 20170321
  Receipt Date: 20170321
  Transmission Date: 20170429
  Serious: No
  Sender: FDA-Public Use
  Company Number: US-SHIRE-US201706334

PATIENT

DRUGS (1)
  1. XIIDRA [Suspect]
     Active Substance: LIFITEGRAST
     Indication: DRY EYE
     Dosage: UNK, UNKNOWN
     Route: 047
     Dates: start: 20170126

REACTIONS (4)
  - Instillation site pruritus [Unknown]
  - Eye pain [Unknown]
  - Chalazion [Unknown]
  - Erythema [Unknown]

NARRATIVE: CASE EVENT DATE: 20170218
